FAERS Safety Report 13058821 (Version 1)
Quarter: 2016Q4

REPORT INFORMATION
  Report Type: Spontaneous
  Country: US (occurrence: US)
  Receive Date: 20161223
  Receipt Date: 20161223
  Transmission Date: 20170207
  Serious: No
  Sender: FDA-Public Use
  Company Number: US-AMGEN-USASP2016177489

PATIENT
  Sex: Female

DRUGS (10)
  1. MOMETASONE FUROATE. [Concomitant]
     Active Substance: MOMETASONE FUROATE
     Dosage: 0.1 %, UNK
  2. ECONAZOLE NITRATE. [Concomitant]
     Active Substance: ECONAZOLE NITRATE
     Dosage: 1 %, UNK
  3. BENZOYL PEROXIDE W/CLINDAMYCIN [Concomitant]
     Dosage: 1%-5%UNK
  4. LIDOCAINE. [Concomitant]
     Active Substance: LIDOCAINE
     Dosage: 5 %, UNK
  5. SUMATRIPTAN. [Concomitant]
     Active Substance: SUMATRIPTAN
     Dosage: UNK
  6. CELECOXIB. [Concomitant]
     Active Substance: CELECOXIB
     Dosage: UNK
  7. LINZESS [Concomitant]
     Active Substance: LINACLOTIDE
     Dosage: UNK
  8. ENBREL [Suspect]
     Active Substance: ETANERCEPT
     Indication: PRODUCT USED FOR UNKNOWN INDICATION
     Dosage: 50 MG, QWK
     Route: 065
     Dates: start: 201511
  9. MELQUIN [Concomitant]
     Dosage: 4 UNK, UNK
  10. CLOBETASOL PROPIONATE. [Concomitant]
     Active Substance: CLOBETASOL PROPIONATE
     Dosage: 0.05 %, UNK

REACTIONS (1)
  - Urine odour abnormal [Unknown]
